FAERS Safety Report 6316514-3 (Version None)
Quarter: 2009Q3

REPORT INFORMATION
  Report Type: 
  Country: None (occurrence: None)
  Receive Date: 20090820
  Receipt Date: 20090810
  Transmission Date: 20100115
  Serious: Yes (Other)
  Sender: FDA-Public Use
  Company Number: US-WATSON-2009-06416

PATIENT
  Age: 60 Year
  Sex: Female

DRUGS (3)
  1. PREDNISONE (WATSON LABORATORIES) [Suspect]
     Indication: SARCOIDOSIS
     Dosage: UNK
     Route: 065
  2. CYCLOSPORINE [Suspect]
     Indication: RENAL TRANSPLANT
     Dosage: UNK
     Route: 065
  3. MYCOPHENOLATE MOFETIL [Suspect]
     Indication: RENAL TRANSPLANT
     Dosage: UNK
     Route: 065

REACTIONS (3)
  - CALCIPHYLAXIS [None]
  - IMPAIRED HEALING [None]
  - SKIN ULCER [None]
